FAERS Safety Report 21180445 (Version 1)
Quarter: 2022Q3

REPORT INFORMATION
  Report Type: Report from Study
  Country: US (occurrence: US)
  Receive Date: 20220806
  Receipt Date: 20220806
  Transmission Date: 20221027
  Serious: Yes (Hospitalization)
  Sender: FDA-Public Use
  Company Number: US-Accord-272454

PATIENT
  Sex: Female
  Weight: 70 kg

DRUGS (2)
  1. CLOZAPINE [Suspect]
     Active Substance: CLOZAPINE
     Indication: Schizophrenia
     Dosage: TWICE A DAY
     Route: 048
  2. PHENYTOIN [Concomitant]
     Active Substance: PHENYTOIN

REACTIONS (1)
  - Mental status changes [Unknown]
